FAERS Safety Report 17941268 (Version 1)
Quarter: 2020Q2

REPORT INFORMATION
  Report Type: Spontaneous
  Country: US (occurrence: US)
  Receive Date: 20200625
  Receipt Date: 20200625
  Transmission Date: 20200714
  Serious: No
  Sender: FDA-Public Use
  Company Number: US-SA-2020SA157765

PATIENT

DRUGS (5)
  1. LOVENOX [Suspect]
     Active Substance: ENOXAPARIN SODIUM
     Dosage: UNK
     Route: 065
  2. CELEBREX [Concomitant]
     Active Substance: CELECOXIB
     Indication: SCIATICA
     Dosage: 1 DF, QD
     Route: 048
  3. HYDROXYZINE HCL [Concomitant]
     Active Substance: HYDROXYZINE HYDROCHLORIDE
     Dosage: UNK UNK, Q6H (Q6H PRN)
     Route: 065
  4. NITROSTAT [Concomitant]
     Active Substance: NITROGLYCERIN
     Dosage: UNK UNK, Q5MN (Q 5MIN PRN)
     Route: 065
  5. CELEBREX [Concomitant]
     Active Substance: CELECOXIB
     Indication: BACK PAIN

REACTIONS (1)
  - Hypersensitivity [Unknown]
